FAERS Safety Report 5600013-8 (Version None)
Quarter: 2008Q1

REPORT INFORMATION
  Report Type: 
  Country: None (occurrence: None)
  Receive Date: 20080118
  Receipt Date: 20080107
  Transmission Date: 20080703
  Serious: Yes (Death)
  Sender: FDA-Public Use
  Company Number: TPA2007A02490

PATIENT
  Age: 52 Year
  Sex: Male
  Weight: 75.7507 kg

DRUGS (2)
  1. ROZEREM [Suspect]
     Indication: INSOMNIA
     Dosage: 8 MG, 1 TAB, HS, PER ORAL
     Route: 048
     Dates: start: 20071210, end: 20071210
  2. ALLERGY SHOTS (ALLERGY MEDICATION) INJECTION [Concomitant]

REACTIONS (2)
  - ASPHYXIA [None]
  - COMPLETED SUICIDE [None]
